FAERS Safety Report 5889914-3 (Version None)
Quarter: 2008Q3

REPORT INFORMATION
  Report Type: 
  Country: None (occurrence: None)
  Receive Date: 20080919
  Receipt Date: 20080915
  Transmission Date: 20090109
  Serious: Yes (Other)
  Sender: FDA-Public Use
  Company Number: PHHY2008FR14566

PATIENT
  Sex: Male
  Weight: 80 kg

DRUGS (3)
  1. TEGRETOL [Suspect]
     Indication: EPILEPSY
     Dosage: 2 TABLET AM, 1 TABLET PM
     Route: 065
  2. TOPIRAMATE [Concomitant]
     Dosage: 25 MG + 100 MG , BID
  3. LAMOTRIGINE [Concomitant]
     Dosage: 100 MG, BID

REACTIONS (2)
  - INFERTILITY [None]
  - SPERMATOZOA PROGRESSIVE MOTILITY DECREASED [None]
